FAERS Safety Report 4917602-6 (Version None)
Quarter: 2006Q1

REPORT INFORMATION
  Report Type: 
  Country: None (occurrence: None)
  Receive Date: 20060221
  Receipt Date: 20050729
  Transmission Date: 20060701
  Serious: Yes (Hospitalization)
  Sender: FDA-Public Use
  Company Number: US-MERCK-0508USA00347

PATIENT
  Age: 66 Year
  Sex: Female
  Weight: 108 kg

DRUGS (13)
  1. VIOXX [Suspect]
     Indication: ARTHRITIS
     Route: 048
     Dates: start: 20020901, end: 20040101
  2. PRILOSEC [Concomitant]
     Route: 065
  3. WELLBUTRIN [Concomitant]
     Route: 065
  4. NITROSTAT [Concomitant]
     Route: 065
  5. ZOCOR [Concomitant]
     Route: 065
  6. ISOSORBIDE [Concomitant]
     Route: 065
  7. SYNTHROID [Concomitant]
     Route: 065
  8. PLAVIX [Concomitant]
     Route: 065
  9. TOPROL-XL [Concomitant]
     Route: 065
  10. COZAAR [Concomitant]
     Route: 065
  11. METOPROLOL [Concomitant]
     Route: 065
  12. PLENDIL [Concomitant]
     Route: 065
  13. METFORMIN [Concomitant]
     Route: 065

REACTIONS (30)
  - ABDOMINAL PAIN [None]
  - ACUTE MYOCARDIAL INFARCTION [None]
  - ANGINA UNSTABLE [None]
  - ARTERIOSCLEROSIS [None]
  - BACK PAIN [None]
  - BALANCE DISORDER [None]
  - CAROTID ARTERY OCCLUSION [None]
  - CHEST DISCOMFORT [None]
  - CHEST PAIN [None]
  - CHRONIC OBSTRUCTIVE PULMONARY DISEASE [None]
  - COLONIC POLYP [None]
  - CORONARY ARTERY DISEASE [None]
  - DIABETES MELLITUS NON-INSULIN-DEPENDENT [None]
  - DIARRHOEA [None]
  - DIVERTICULUM [None]
  - FACIAL PALSY [None]
  - GROIN PAIN [None]
  - HYPOMAGNESAEMIA [None]
  - HYPOTENSION [None]
  - HYPOTHYROIDISM [None]
  - IRRITABLE BOWEL SYNDROME [None]
  - LIPIDS INCREASED [None]
  - MUCOUS STOOLS [None]
  - MYOCARDIAL ISCHAEMIA [None]
  - OBESITY [None]
  - OCCULT BLOOD POSITIVE [None]
  - PERIPHERAL VASCULAR DISORDER [None]
  - SHOULDER PAIN [None]
  - TRANSIENT ISCHAEMIC ATTACK [None]
  - VENTRICULAR HYPOKINESIA [None]
